FAERS Safety Report 19351674 (Version 1)
Quarter: 2021Q2

REPORT INFORMATION
  Report Type: Spontaneous
  Country: DE (occurrence: DE)
  Receive Date: 20210531
  Receipt Date: 20210531
  Transmission Date: 20210717
  Serious: Yes (Other)
  Sender: FDA-Public Use
  Company Number: DE-ROCHE-2838964

PATIENT
  Age: 56 Year
  Sex: Male

DRUGS (3)
  1. CISPLATIN. [Concomitant]
     Active Substance: CISPLATIN
  2. XELODA [Suspect]
     Active Substance: CAPECITABINE
     Indication: GALLBLADDER CANCER
     Route: 048
     Dates: start: 202003, end: 202009
  3. GEMCITABINE. [Concomitant]
     Active Substance: GEMCITABINE

REACTIONS (7)
  - Metastases to liver [Unknown]
  - Biliary obstruction [Unknown]
  - Metastases to peritoneum [Unknown]
  - Off label use [Unknown]
  - Metastases to diaphragm [Unknown]
  - Metastases to abdominal wall [Unknown]
  - Biliary neoplasm [Unknown]

NARRATIVE: CASE EVENT DATE: 20210423
